FAERS Safety Report 5683050-7 (Version None)
Quarter: 2008Q1

REPORT INFORMATION
  Report Type: 
  Country: None (occurrence: None)
  Receive Date: 20080327
  Receipt Date: 20080319
  Transmission Date: 20080703
  Serious: Yes (Other)
  Sender: FDA-Public Use
  Company Number: PHBS2007JP21444

PATIENT
  Age: 54 Year
  Sex: Female
  Weight: 52 kg

DRUGS (4)
  1. ZOMETA [Suspect]
     Indication: METASTASES TO BONE
     Dosage: 4 MG
     Route: 042
     Dates: start: 20060530, end: 20070417
  2. AREDIA [Concomitant]
     Indication: MULTIPLE MYELOMA
     Dosage: 45 MG
     Route: 042
     Dates: start: 20041019
  3. AREDIA [Concomitant]
     Dosage: 30 MG
     Route: 042
  4. AREDIA [Concomitant]
     Dosage: 45 MG
     Route: 042

REACTIONS (8)
  - BONE DISORDER [None]
  - BREATH ODOUR [None]
  - GINGIVAL PAIN [None]
  - ORAL MUCOSAL EXFOLIATION [None]
  - OSTEOMYELITIS [None]
  - OSTEONECROSIS [None]
  - PAIN [None]
  - TOOTH DISORDER [None]
